FAERS Safety Report 4612941-0 (Version None)
Quarter: 2005Q1

REPORT INFORMATION
  Report Type: 
  Country: None (occurrence: None)
  Receive Date: 20050318
  Receipt Date: 20050307
  Transmission Date: 20050727
  Serious: Yes (Other)
  Sender: FDA-Public Use
  Company Number: US-ROCHE-397874

PATIENT
  Age: 60 Year
  Sex: Female
  Weight: 66.2 kg

DRUGS (10)
  1. VALIUM [Suspect]
     Indication: ANXIETY
     Route: 048
     Dates: start: 19950615, end: 19960615
  2. VALIUM [Suspect]
     Route: 048
     Dates: start: 20040915
  3. VALIUM [Suspect]
     Dosage: DOSE INCREASED.
     Route: 048
  4. VALIUM [Suspect]
     Dosage: DOSE DECREASED.
     Route: 048
  5. PAXIL [Suspect]
     Indication: ANXIETY
     Route: 048
  6. ZOCOR [Concomitant]
     Route: 048
  7. VASOTEC [Concomitant]
     Route: 048
  8. INSULIN [Concomitant]
  9. INH [Concomitant]
     Indication: TUBERCULOSIS
     Route: 048
  10. UNSPECIFIED MEDICATION [Concomitant]
     Dosage: TRADE NAME REPORTED AS ARANASE.
     Route: 048

REACTIONS (4)
  - BLOOD CREATININE INCREASED [None]
  - BLOOD UREA INCREASED [None]
  - DEPENDENCE [None]
  - DYSARTHRIA [None]
